FAERS Safety Report 5507850-9 (Version None)
Quarter: 2007Q4

REPORT INFORMATION
  Report Type: 
  Country: None (occurrence: None)
  Receive Date: 20071101
  Receipt Date: 20070810
  Transmission Date: 20080405
  Serious: Yes (Hospitalization)
  Sender: FDA-Public Use
  Company Number: 2007EN000195

PATIENT
  Age: 35 Year
  Sex: Female

DRUGS (1)
  1. OPANA ER [Suspect]
     Indication: DRUG USE FOR UNKNOWN INDICATION

REACTIONS (5)
  - BRADYCARDIA [None]
  - DIZZINESS [None]
  - HALLUCINATION [None]
  - NAUSEA [None]
  - VOMITING [None]
